FAERS Safety Report 10091751 (Version 1)
Quarter: 2014Q2

REPORT INFORMATION
  Report Type: Spontaneous
  Country: US (occurrence: US)
  Receive Date: 20140421
  Receipt Date: 20140421
  Transmission Date: 20141212
  Serious: No
  Sender: FDA-Public Use
  Company Number: US-PURDUE-USA-2003-0009327

PATIENT
  Age: 46 Year
  Sex: Female

DRUGS (3)
  1. OXYIR CAPSULES 5 MG [Suspect]
     Indication: CANCER PAIN
     Dosage: 5 MG, UNK
     Route: 048
  2. OXYCONTIN TABLETS [Concomitant]
     Indication: CANCER PAIN
     Dosage: 120 MG, Q12H
     Route: 048
  3. UNKNOWN [Concomitant]
     Dosage: UNK, UNK

REACTIONS (1)
  - Drug ineffective [Recovered/Resolved]
